FAERS Safety Report 7239683-X (Version None)
Quarter: 2011Q1

REPORT INFORMATION
  Report Type: 
  Country: None (occurrence: None)
  Receive Date: 20110122
  Receipt Date: 20101012
  Transmission Date: 20110831
  Serious: No
  Sender: FDA-Public Use
  Company Number: US-ALLERGAN-1013115US

PATIENT
  Sex: Male

DRUGS (1)
  1. LATISSE [Suspect]
     Indication: GROWTH OF EYELASHES
     Dosage: UNK
     Route: 061

REACTIONS (2)
  - INCORRECT DOSE ADMINISTERED [None]
  - SCLERAL HYPERAEMIA [None]
